FAERS Safety Report 9925639 (Version 1)
Quarter: 2014Q1

REPORT INFORMATION
  Report Type: Spontaneous
  Country: US (occurrence: None)
  Receive Date: 20140221
  Receipt Date: 20140221
  Transmission Date: 20141002
  Serious: Yes (Life-Threatening, Hospitalization)
  Sender: FDA-Public Use
  Company Number: SYM-2014-17458

PATIENT
  Age: 60 Year
  Sex: Female

DRUGS (3)
  1. FLUOROURACIL (FLUOROURACIL) (FLUOROURACIL) [Suspect]
     Indication: COLON CANCER METASTATIC
     Route: 042
  2. LEUCOVORIN (FOLINIC ACID) (FOLINIC ACID) [Concomitant]
  3. OXALIPLATIN (OXALIPLATIN) (OXALIPLATIN) [Concomitant]

REACTIONS (8)
  - Pancytopenia [None]
  - Clostridium difficile infection [None]
  - Blood potassium decreased [None]
  - Blood alkaline phosphatase increased [None]
  - Large intestine perforation [None]
  - Oesophagitis [None]
  - Dehydration [None]
  - Mucosal inflammation [None]
